FAERS Safety Report 9499774 (Version 2)
Quarter: 2014Q1

REPORT INFORMATION
  Report Type: Spontaneous
  Country: US (occurrence: US)
  Receive Date: 20130905
  Receipt Date: 20140103
  Transmission Date: 20141002
  Serious: Yes (Other)
  Sender: FDA-Public Use
  Company Number: US-JNJFOC-20130816806

PATIENT
  Sex: Female

DRUGS (1)
  1. XARELTO [Suspect]
     Indication: DEEP VEIN THROMBOSIS
     Route: 048
     Dates: start: 20130826

REACTIONS (4)
  - Hypotension [Unknown]
  - Dysmenorrhoea [Not Recovered/Not Resolved]
  - Gingival bleeding [Recovered/Resolved]
  - Hot flush [Not Recovered/Not Resolved]
